FAERS Safety Report 6537176-6 (Version None)
Quarter: 2010Q1

REPORT INFORMATION
  Report Type: 
  Country: None (occurrence: None)
  Receive Date: 20100110
  Receipt Date: 20091229
  Transmission Date: 20100710
  Serious: Yes (Hospitalization)
  Sender: FDA-Public Use
  Company Number: 237200K09USA

PATIENT
  Age: 38 Year
  Sex: Female

DRUGS (2)
  1. REBIF [Suspect]
     Indication: MULTIPLE SCLEROSIS
     Dosage: 44 MCG, 3 IN 1 WEEKS, SUBCUTANEOUS
     Route: 058
     Dates: start: 20070817
  2. KEPPRA XR (LEVETIRACETAM) [Concomitant]

REACTIONS (15)
  - APPLICATION SITE HAEMATOMA [None]
  - CARDIAC FAILURE CONGESTIVE [None]
  - CONVULSION [None]
  - CRYING [None]
  - CSF PRESSURE INCREASED [None]
  - EPILEPSY [None]
  - FEELING ABNORMAL [None]
  - INJECTION SITE PAIN [None]
  - INJECTION SITE REACTION [None]
  - MUSCULAR WEAKNESS [None]
  - PANIC ATTACK [None]
  - SHUNT MALFUNCTION [None]
  - SKIN LACERATION [None]
  - SPEECH DISORDER [None]
  - STRESS [None]
